FAERS Safety Report 25609560 (Version 1)
Quarter: 2025Q3

REPORT INFORMATION
  Report Type: Spontaneous
  Country: CA (occurrence: CA)
  Receive Date: 20250728
  Receipt Date: 20250728
  Transmission Date: 20251020
  Serious: Yes (Other)
  Sender: ASTELLAS
  Company Number: CA-ASTELLAS-2025-AER-039876

PATIENT
  Age: 10 Year
  Sex: Female

DRUGS (6)
  1. TACROLIMUS [Suspect]
     Active Substance: TACROLIMUS
     Indication: Renal transplant
     Dosage: WITH A TROUGH TARGET LEVEL OF 5-7 NG/ML
     Route: 048
     Dates: start: 202202, end: 202407
  2. TACROLIMUS [Suspect]
     Active Substance: TACROLIMUS
     Route: 048
     Dates: start: 202407
  3. MYCOPHENOLATE MOFETIL [Suspect]
     Active Substance: MYCOPHENOLATE MOFETIL
     Indication: Renal transplant
     Dosage: REDUCED
     Route: 065
     Dates: start: 202312, end: 202404
  4. MYCOPHENOLATE MOFETIL [Suspect]
     Active Substance: MYCOPHENOLATE MOFETIL
     Route: 065
     Dates: start: 202202, end: 202312
  5. PREDNISONE [Suspect]
     Active Substance: PREDNISONE
     Indication: Renal transplant
     Dosage: REDUCED TO ALTERNATE DAY DOSING
     Route: 065
     Dates: start: 202407
  6. PREDNISONE [Suspect]
     Active Substance: PREDNISONE
     Dosage: 0.1 MG/KG/DAY
     Route: 065
     Dates: start: 202202, end: 202407

REACTIONS (2)
  - Trichodysplasia spinulosa [Recovered/Resolved]
  - Polyomavirus viraemia [Recovered/Resolved]

NARRATIVE: CASE EVENT DATE: 20230401
